FAERS Safety Report 12070520 (Version 2)
Quarter: 2016Q1

REPORT INFORMATION
  Report Type: Report from Study
  Country: AR (occurrence: AR)
  Receive Date: 20160211
  Receipt Date: 20160323
  Transmission Date: 20160526
  Serious: Yes (Other)
  Sender: FDA-Public Use
  Company Number: AR-ABBVIE-16K-007-1555486-00

PATIENT
  Sex: Female

DRUGS (4)
  1. BRIMOPRESS [Concomitant]
     Indication: GLAUCOMA
     Dosage: 1 DROP EVERY 12 HOURS, IN BOTH EYES
  2. PREDNEFRIN [Concomitant]
     Indication: PRODUCT USED FOR UNKNOWN INDICATION
     Dosage: 1 DROP EVERY 12 HOURS, IN BOTH EYES
  3. HUMIRA [Suspect]
     Active Substance: ADALIMUMAB
     Indication: ANKYLOSING SPONDYLITIS
     Route: 058
     Dates: start: 20150413, end: 201512
  4. ATROPINE. [Concomitant]
     Active Substance: ATROPINE
     Indication: PRODUCT USED FOR UNKNOWN INDICATION
     Dosage: 1 DROP EVERY 12 HOURS, IN BOTH EYES

REACTIONS (2)
  - Blindness unilateral [Unknown]
  - Intraocular pressure test abnormal [Unknown]
